FAERS Safety Report 18655897 (Version 1)
Quarter: 2020Q4

REPORT INFORMATION
  Report Type: Spontaneous
  Country: JP (occurrence: JP)
  Receive Date: 20201223
  Receipt Date: 20201223
  Transmission Date: 20210114
  Serious: Yes (Other)
  Sender: FDA-Public Use
  Company Number: JP-EISAI MEDICAL RESEARCH-EC-2020-085480

PATIENT
  Age: 73 Year
  Sex: Female

DRUGS (1)
  1. HALAVEN [Suspect]
     Active Substance: ERIBULIN MESYLATE
     Indication: INVASIVE DUCTAL BREAST CARCINOMA
     Dosage: DOSE AND FREQUENCY NOT PROVIDED
     Route: 041

REACTIONS (1)
  - Hepatitis B reactivation [Unknown]
